FAERS Safety Report 9060457 (Version 2)
Quarter: 2013Q1

REPORT INFORMATION
  Report Type: Spontaneous
  Country: US (occurrence: US)
  Receive Date: 20130212
  Receipt Date: 20130315
  Transmission Date: 20140127
  Serious: No
  Sender: FDA-Public Use
  Company Number: US-PFIZER INC-2013051958

PATIENT
  Age: 43 Year
  Sex: Female
  Weight: 46 kg

DRUGS (9)
  1. LYRICA [Suspect]
     Indication: ANXIETY
     Dosage: 25 MG, 2X/DAY
     Route: 048
     Dates: start: 20130116
  2. LYRICA [Suspect]
     Indication: DEPRESSION
     Dosage: 50 MG, 2X/DAY
     Route: 048
  3. LYRICA [Suspect]
     Indication: NEURALGIA
  4. LYRICA [Suspect]
     Indication: PAIN
  5. GABAPENTIN [Concomitant]
     Indication: CERVICOBRACHIAL SYNDROME
     Dosage: 100 MG, 4X/DAY
  6. GABAPENTIN [Concomitant]
     Indication: NEURALGIA
  7. PROPANOLOL [Concomitant]
     Indication: CHEST PAIN
     Dosage: 40 MG, DAILY
  8. PROPANOLOL [Concomitant]
     Indication: TREMOR
  9. SEROQUEL [Concomitant]
     Indication: INSOMNIA
     Dosage: 50 MG, AT BED TIME AS NEEDED

REACTIONS (1)
  - Lipase increased [Unknown]
